FAERS Safety Report 8004574-3 (Version None)
Quarter: 2011Q4

REPORT INFORMATION
  Report Type: 
  Country: None (occurrence: None)
  Receive Date: 20111220
  Receipt Date: 20111205
  Transmission Date: 20120403
  Serious: Yes (Hospitalization)
  Sender: FDA-Public Use
  Company Number: DSJ-2011-06655

PATIENT
  Age: 68 Year
  Sex: Male

DRUGS (11)
  1. ALOSITOL (ALLOPURINOL) (ALLOPURINOL) [Concomitant]
  2. CONIEL (BENIDIPINE HYDROCHLORIDE) (BENIDIPINE HYDROCHLORIDE) [Concomitant]
  3. ASPIRIN [Concomitant]
  4. ALOSENN (SENNA ALEXANDRINA) (SENNA ALEXANDRINA) [Concomitant]
  5. FERROMIA (FERROUS CITRATE) (FERROUS CITRATE) [Concomitant]
  6. CRAVIT (LEVOFLOXACIN) (EYE DROPS) (LEVOFLOXACIN) [Concomitant]
  7. LASIX [Suspect]
     Dosage: 80 MG
     Dates: end: 20110414
  8. ARGAMATE (CALCIUM POLYSTYRENE SULFONATE) (CALCIUM POLYSTYRENE SULFONAT [Concomitant]
  9. HUMULIN R (INSULIN HUMAN) (INJECTION) (INSULIN HUMAN) [Concomitant]
  10. OLMESARTAN MEDOXOMIL [Suspect]
     Indication: ESSENTIAL HYPERTENSION
     Dosage: 5 MG, PER ORAL
     Route: 048
     Dates: start: 20100930, end: 20110317
  11. JUSO (SODIUM BICARBONATE) (SODIUM BICARBONATE) [Concomitant]

REACTIONS (3)
  - HYPOTENSION [None]
  - NASOPHARYNGITIS [None]
  - RENAL IMPAIRMENT [None]
